FAERS Safety Report 23443281 (Version 1)
Quarter: 2024Q1

REPORT INFORMATION
  Report Type: Report from Study
  Country: CA (occurrence: CA)
  Receive Date: 20240125
  Receipt Date: 20240125
  Transmission Date: 20240410
  Serious: Yes (Other)
  Sender: FDA-Public Use
  Company Number: CA-002147023-NVSC2024CA012740

PATIENT

DRUGS (2)
  1. DICLOFENAC SODIUM [Suspect]
     Active Substance: DICLOFENAC\DICLOFENAC SODIUM
     Indication: Product used for unknown indication
     Dosage: UNK
     Route: 065
     Dates: start: 201806
  2. ARAVA [Concomitant]
     Active Substance: LEFLUNOMIDE
     Indication: Product used for unknown indication
     Dosage: 10 MG, QD
     Route: 065
     Dates: start: 201905, end: 20200407

REACTIONS (16)
  - Seronegative arthritis [Unknown]
  - Fall [Unknown]
  - Arthralgia [Unknown]
  - Synovitis [Unknown]
  - Tendon disorder [Unknown]
  - Gastrointestinal disorder [Unknown]
  - Arthritis [Unknown]
  - Nausea [Unknown]
  - Abdominal pain [Unknown]
  - Diarrhoea [Unknown]
  - Neck pain [Unknown]
  - Spinal osteoarthritis [Unknown]
  - Pain [Unknown]
  - Joint space narrowing [Unknown]
  - Foot deformity [Unknown]
  - Bone deformity [Unknown]

NARRATIVE: CASE EVENT DATE: 20180701
